FAERS Safety Report 9028003 (Version 1)
Quarter: 2013Q1

REPORT INFORMATION
  Report Type: Spontaneous
  Country: US (occurrence: None)
  Receive Date: 20130114
  Receipt Date: 20130114
  Transmission Date: 20140127
  Serious: Yes (Other)
  Sender: FDA-Public Use
  Company Number: None

PATIENT
  Age: 29 Year
  Sex: Female
  Weight: 56.7 kg

DRUGS (1)
  1. LATISSE, , ALLERGAN [Suspect]
     Dosage: {1 DROP ON APPLICATOR 1X BEFORE BED LASH LINE

REACTIONS (2)
  - Eye irritation [None]
  - Eye colour change [None]
